FAERS Safety Report 17662448 (Version 7)
Quarter: 2020Q4

REPORT INFORMATION
  Report Type: Report from Study
  Country: None (occurrence: FR)
  Receive Date: 20200413
  Receipt Date: 20201216
  Transmission Date: 20210113
  Serious: Yes (Other)
  Sender: FDA-Public Use
  Company Number: FR-ABBVIE-20P-056-3358038-00

PATIENT
  Age: 70 Year
  Sex: Male

DRUGS (4)
  1. KALETRA [Suspect]
     Active Substance: LOPINAVIR\RITONAVIR
     Dosage: 400/100MG
     Route: 050
     Dates: start: 202004
  2. REBIF [Concomitant]
     Active Substance: INTERFERON BETA-1A
     Route: 050
     Dates: start: 20200406, end: 20200406
  3. REBIF [Concomitant]
     Active Substance: INTERFERON BETA-1A
     Indication: CORONAVIRUS INFECTION
     Route: 050
     Dates: start: 20200404, end: 20200404
  4. KALETRA [Suspect]
     Active Substance: LOPINAVIR\RITONAVIR
     Indication: CORONAVIRUS INFECTION
     Dosage: 400/100MG
     Route: 050
     Dates: start: 20200404, end: 20200407

REACTIONS (5)
  - Bradycardia [Recovered/Resolved]
  - Atrial fibrillation [Not Recovered/Not Resolved]
  - Conduction disorder [Recovered/Resolved]
  - Atrioventricular block [Recovered/Resolved]
  - Circulatory collapse [Recovered/Resolved]

NARRATIVE: CASE EVENT DATE: 20200407
